FAERS Safety Report 4668231-3 (Version None)
Quarter: 2005Q2

REPORT INFORMATION
  Report Type: 
  Country: None (occurrence: None)
  Receive Date: 20050523
  Receipt Date: 20050223
  Transmission Date: 20051028
  Serious: Yes (Other)
  Sender: FDA-Public Use
  Company Number: PHEH2005US02427

PATIENT
  Age: 68 Year
  Sex: Male
  Weight: 223 kg

DRUGS (7)
  1. ZOMETA [Suspect]
     Indication: METASTASIS
  2. LUPRON [Concomitant]
     Dosage: 7.5 MG, QMO
     Route: 030
     Dates: start: 20020208
  3. CASODEX [Concomitant]
     Dosage: 50 MG, QD
     Dates: start: 20020208
  4. PROSCAR [Concomitant]
     Dosage: 5 MG, QD
     Dates: start: 20020420
  5. ROCALTROL [Concomitant]
     Dosage: 0.5 MG, QD
     Dates: start: 20020507
  6. CELEBREX [Concomitant]
     Dosage: 200 MG, QD
     Dates: start: 20021122
  7. FLUTAMIDE [Concomitant]
     Dosage: 250 MG, TID
     Dates: start: 20031001

REACTIONS (7)
  - ANAEMIA [None]
  - BONE INFECTION [None]
  - ENDODONTIC PROCEDURE [None]
  - JAW DISORDER [None]
  - OSTEONECROSIS [None]
  - WOUND DEBRIDEMENT [None]
  - WOUND TREATMENT [None]
